FAERS Safety Report 8769233 (Version 1)
Quarter: 2012Q4

REPORT INFORMATION
  Report Type: 
  Country: NL (occurrence: NL)
  Receive Date: 20120905
  Receipt Date: 20120905
  Transmission Date: 20130627
  Serious: Yes (Hospitalization)
  Sender: FDA-Public Use
  Company Number: NL-MYLANLABS-2012S1017578

PATIENT
  Age: 4 Year
  Sex: Female

DRUGS (2)
  1. VALPROIC ACID [Suspect]
     Indication: IDIOPATHIC GENERALISED EPILEPSY
     Dosage: 31 mg/kg/day for 2.5y; then tapered to 5 mg/kg/day over 1m before presenting
     Route: 065
  2. VALPROIC ACID [Suspect]
     Indication: IDIOPATHIC GENERALISED EPILEPSY
     Dosage: 5 mg/kg/day at admission
     Route: 065

REACTIONS (5)
  - Withdrawal syndrome [Recovered/Resolved]
  - Hallucination, visual [Recovered/Resolved]
  - Hallucination, auditory [Recovered/Resolved]
  - Hallucination, tactile [Recovered/Resolved]
  - Anxiety [Recovered/Resolved]
